FAERS Safety Report 5216414-6 (Version None)
Quarter: 2006Q4

REPORT INFORMATION
  Report Type: 
  Country: None (occurrence: None)
  Receive Date: 20061124
  Receipt Date: 20061004
  Transmission Date: 20070319
  Serious: Yes (Hospitalization)
  Sender: FDA-Public Use
  Company Number: WAES 0610USA03573

PATIENT
  Age: 51 Year
  Sex: Male
  Weight: 135.6255 kg

DRUGS (5)
  1. VYTORIN [Suspect]
     Indication: BLOOD CHOLESTEROL INCREASED
     Dosage: 10-20 MG/DAILY/PO
     Route: 048
     Dates: start: 20060601, end: 20060905
  2. VYTORIN [Suspect]
     Indication: HYPERLIPIDAEMIA
     Dosage: 10-20 MG/DAILY/PO
     Route: 048
     Dates: start: 20060601, end: 20060905
  3. ASPIRIN [Concomitant]
  4. HYDROCHLOROTHIAZIDE (+) KUSUBIO [Concomitant]
  5. METFORMIN HCL [Concomitant]

REACTIONS (1)
  - PANCREATITIS [None]
